FAERS Safety Report 4693274-3 (Version None)
Quarter: 2005Q2

REPORT INFORMATION
  Report Type: 
  Country: None (occurrence: None)
  Receive Date: 20050617
  Receipt Date: 20050526
  Transmission Date: 20051028
  Serious: Yes (Disabling)
  Sender: FDA-Public Use
  Company Number: US-MERCK-0505USA03162

PATIENT
  Age: 51 Year
  Sex: Male
  Weight: 156 kg

DRUGS (5)
  1. ZOCOR [Suspect]
     Indication: BLOOD CHOLESTEROL INCREASED
     Route: 048
     Dates: start: 20001201, end: 20011001
  2. PRINIVIL [Concomitant]
     Route: 048
  3. METFORMIN [Concomitant]
     Route: 065
  4. ACTOS [Concomitant]
     Route: 065
  5. TOPROL-XL [Concomitant]
     Route: 065

REACTIONS (3)
  - MUSCLE SPASMS [None]
  - MYALGIA [None]
  - SENSATION OF PRESSURE [None]
